FAERS Safety Report 18875254 (Version 1)
Quarter: 2021Q1

REPORT INFORMATION
  Report Type: Report from Study
  Country: US (occurrence: US)
  Receive Date: 20210210
  Receipt Date: 20210210
  Transmission Date: 20210420
  Serious: Yes (Other)
  Sender: FDA-Public Use
  Company Number: US-BAYER-2021-030083

PATIENT
  Age: 65 Year
  Sex: Female
  Weight: 67.12 kg

DRUGS (4)
  1. ELIQUIS [Concomitant]
     Active Substance: APIXABAN
     Dosage: UNK
  2. ADEMPAS [Suspect]
     Active Substance: RIOCIGUAT
     Indication: PULMONARY ARTERIAL HYPERTENSION
     Dosage: 0.5 MG, BID
     Route: 048
     Dates: start: 20201110
  3. MACITENTAN [Suspect]
     Active Substance: MACITENTAN
     Indication: PULMONARY ARTERIAL HYPERTENSION
     Dosage: 10 MG
     Route: 048
  4. OPSUMIT [Concomitant]
     Active Substance: MACITENTAN
     Dosage: UNK

REACTIONS (14)
  - Pulmonary embolism [None]
  - Pain [None]
  - Arthralgia [None]
  - Varicose vein [None]
  - Muscle tightness [None]
  - Erythema [None]
  - Pollakiuria [None]
  - Musculoskeletal stiffness [None]
  - Pain in extremity [None]
  - Pruritus [None]
  - Inappropriate schedule of product administration [None]
  - Peripheral swelling [Recovering/Resolving]
  - Joint stiffness [None]
  - Joint swelling [None]

NARRATIVE: CASE EVENT DATE: 20201110
